FAERS Safety Report 4900764-4 (Version None)
Quarter: 2006Q1

REPORT INFORMATION
  Report Type: 
  Country: None (occurrence: None)
  Receive Date: 20060201
  Receipt Date: 20060113
  Transmission Date: 20060701
  Serious: Yes (Death, Other)
  Sender: FDA-Public Use
  Company Number: CA200511002883

PATIENT
  Age: 47 Year
  Sex: Female
  Weight: 74 kg

DRUGS (10)
  1. GEMCITABINE HYDROCHLORIDE (GEMCITABINE HYDROCHLORIDE) VIAL [Suspect]
     Indication: METASTATIC CARCINOMA OF THE BLADDER
     Dosage: SEE IMAGE
     Route: 042
     Dates: start: 20050908, end: 20050915
  2. GEMCITABINE HYDROCHLORIDE (GEMCITABINE HYDROCHLORIDE) VIAL [Suspect]
     Indication: METASTATIC CARCINOMA OF THE BLADDER
     Dosage: SEE IMAGE
     Route: 042
     Dates: start: 20051006
  3. CISPLATIN [Concomitant]
  4. DECADRON [Concomitant]
  5. ZOFRAN [Concomitant]
  6. LOSEC (OMEPRAZOLE) [Concomitant]
  7. PROCHLORPERAZINE [Concomitant]
  8. ATIVAN [Concomitant]
  9. MANNITOL [Concomitant]
  10. LASIX [Concomitant]

REACTIONS (6)
  - CARDIOGENIC SHOCK [None]
  - FEBRILE NEUTROPENIA [None]
  - GASTRITIS [None]
  - MYOCARDIAL INFARCTION [None]
  - PLATELET COUNT DECREASED [None]
  - VASCULAR OCCLUSION [None]
